FAERS Safety Report 19573275 (Version 2)
Quarter: 2021Q3

REPORT INFORMATION
  Report Type: Spontaneous
  Country: ES (occurrence: ES)
  Receive Date: 20210717
  Receipt Date: 20210804
  Transmission Date: 20211014
  Serious: Yes (Other)
  Sender: FDA-Public Use
  Company Number: ES-AUROBINDO-AUR-APL-2021-030045

PATIENT
  Age: 72 Year
  Sex: Female

DRUGS (21)
  1. BISOPROLOL [Concomitant]
     Active Substance: BISOPROLOL
     Indication: TACHYCARDIA
     Dosage: UNK UNK, AS NECESSARY
     Route: 065
  2. IBANDRONATE [Concomitant]
     Active Substance: IBANDRONATE SODIUM
     Indication: OSTEOPOROSIS
     Dosage: 1 DOSAGE FORM
     Route: 065
  3. LORAZEPAM. [Concomitant]
     Active Substance: LORAZEPAM
     Indication: INSOMNIA
     Dosage: 1 DOSAGE FORM, ONCE A DAY
     Route: 065
  4. ALPRAZOLAM. [Concomitant]
     Active Substance: ALPRAZOLAM
     Indication: ANXIETY
     Dosage: UNK, AS NECESSARY
     Route: 065
  5. IRON [Concomitant]
     Active Substance: IRON
     Indication: ANAEMIA
     Dosage: UNKNOWN
     Route: 065
  6. LIDOCAINE. [Concomitant]
     Active Substance: LIDOCAINE
     Indication: BACK PAIN
     Dosage: 0.5 DOSAGE FORM, ONCE A DAY
     Route: 065
  7. VENLAFAXINE 75MG [Interacting]
     Active Substance: VENLAFAXINE HYDROCHLORIDE
     Indication: DEPRESSION
  8. SULPIRIDE [Concomitant]
     Active Substance: SULPIRIDE
     Indication: VERTIGO
     Dosage: UNK
     Route: 065
  9. TRAMADOL. [Interacting]
     Active Substance: TRAMADOL
     Indication: PAIN
     Dosage: 3 DOSAGE FORM, ONCE A DAY
     Route: 065
  10. ESCITALOPRAM 20 MG [Suspect]
     Active Substance: ESCITALOPRAM OXALATE
     Indication: DEPRESSION
     Dosage: 20 MILLIGRAM, ONCE A DAY
     Route: 065
  11. PARACETAMOL;TRAMADOL [Interacting]
     Active Substance: ACETAMINOPHEN\TRAMADOL
     Indication: PAIN
     Dosage: 1 DOSAGE FORM, ONCE A DAY
     Route: 065
  12. BISOPROLOL [Concomitant]
     Active Substance: BISOPROLOL
     Indication: ANXIETY
  13. CALCIUM + VITAMIN D [Concomitant]
     Active Substance: CALCIUM\VITAMIN D
     Indication: OSTEOPOROSIS
     Dosage: UNK
     Route: 065
  14. FUROSEMIDE. [Concomitant]
     Active Substance: FUROSEMIDE
     Indication: HYPERTENSION
     Dosage: 1 DOSAGE FORM, ONCE A DAY
     Route: 065
  15. PANTOPRAZOLE [Concomitant]
     Active Substance: PANTOPRAZOLE
     Indication: ABDOMINAL DISCOMFORT
     Dosage: 40 MILLIGRAM, ONCE A DAY
     Route: 065
  16. VENLAFAXINE 75MG [Interacting]
     Active Substance: VENLAFAXINE HYDROCHLORIDE
     Indication: FIBROMYALGIA
     Dosage: 2 DOSAGE FORM, ONCE A DAY
     Route: 065
  17. ALPRAZOLAM. [Concomitant]
     Active Substance: ALPRAZOLAM
     Indication: HYPERTENSION
  18. FERROUS FUMARATE;FOLIC ACID [Concomitant]
     Active Substance: FERROUS FUMARATE\FOLIC ACID
     Indication: IRON DEFICIENCY ANAEMIA
     Dosage: UNK
     Route: 065
  19. TRAMADOL. [Concomitant]
     Active Substance: TRAMADOL
     Indication: PRODUCT USED FOR UNKNOWN INDICATION
     Dosage: UNKNOWN
     Route: 065
  20. VENLAFAXINE 75MG [Interacting]
     Active Substance: VENLAFAXINE HYDROCHLORIDE
     Indication: ANXIETY
     Dosage: UNK
     Route: 065
  21. TIZANIDINE. [Concomitant]
     Active Substance: TIZANIDINE
     Indication: MUSCLE RELAXANT THERAPY
     Dosage: 1 DOSAGE FORM, ONCE A DAY
     Route: 065

REACTIONS (10)
  - Drug interaction [Unknown]
  - Vision blurred [Not Recovered/Not Resolved]
  - Cogwheel rigidity [Recovered/Resolved]
  - Xerophthalmia [Unknown]
  - Serotonin syndrome [Recovering/Resolving]
  - Tremor [Recovered/Resolved]
  - Sedation [Recovered/Resolved]
  - Dry mouth [Unknown]
  - Cognitive disorder [Recovered/Resolved]
  - Dysarthria [Unknown]
